FAERS Safety Report 7394626-3 (Version None)
Quarter: 2011Q1

REPORT INFORMATION
  Report Type: 
  Country: None (occurrence: None)
  Receive Date: 20110331
  Receipt Date: 20110331
  Transmission Date: 20110831
  Serious: Yes (Hospitalization)
  Sender: FDA-Public Use
  Company Number: None

PATIENT
  Sex: Female
  Weight: 120 kg

DRUGS (2)
  1. ETOPOSIDE [Suspect]
     Dosage: 660 MG
     Dates: end: 20091007
  2. CISPLATIN [Suspect]
     Dosage: 165 MG
     Dates: end: 20091005

REACTIONS (4)
  - URATE NEPHROPATHY [None]
  - BLOOD CREATININE INCREASED [None]
  - TUMOUR LYSIS SYNDROME [None]
  - BLOOD URIC ACID INCREASED [None]
